FAERS Safety Report 7493706-1 (Version None)
Quarter: 2011Q2

REPORT INFORMATION
  Report Type: 
  Country: None (occurrence: None)
  Receive Date: 20110513
  Receipt Date: 20110429
  Transmission Date: 20111010
  Serious: Yes (Hospitalization)
  Sender: FDA-Public Use
  Company Number: 2011MA005400

PATIENT
  Age: 87 Year
  Sex: Female

DRUGS (8)
  1. ACETAMINOPHEN [Concomitant]
  2. LANSOPRAZOLE [Concomitant]
  3. CALCICHEW [Concomitant]
  4. SIMVASTATIN [Concomitant]
  5. ACETAYLSALICYLIC  ACID [Concomitant]
  6. CITALOPRAM HYDROBROMIDE [Suspect]
     Indication: DEPRESSION
     Dosage: 10 MG; PO
     Route: 048
     Dates: start: 20110228, end: 20110317
  7. BRIMONIDINE [Concomitant]
  8. BIMATOPROST [Concomitant]

REACTIONS (6)
  - ASTHENIA [None]
  - PRESYNCOPE [None]
  - CONFUSIONAL STATE [None]
  - MALAISE [None]
  - LETHARGY [None]
  - HYPONATRAEMIA [None]
